FAERS Safety Report 9087198 (Version 1)
Quarter: 2013Q1

REPORT INFORMATION
  Report Type: Spontaneous
  Country: US (occurrence: US)
  Receive Date: 20130201
  Receipt Date: 20130201
  Transmission Date: 20140127
  Serious: No
  Sender: FDA-Public Use
  Company Number: US-ABBOTT-12P-163-1024242-00

PATIENT
  Age: 59 Year
  Sex: Female
  Weight: 104.42 kg

DRUGS (3)
  1. HUMIRA [Suspect]
     Indication: COLITIS ULCERATIVE
     Route: 058
     Dates: start: 20121105, end: 20121105
  2. HUMIRA [Suspect]
     Route: 058
     Dates: start: 20121119, end: 20121119
  3. HUMIRA [Suspect]
     Route: 058
     Dates: start: 20121203

REACTIONS (2)
  - Injury associated with device [Not Recovered/Not Resolved]
  - Injection site haemorrhage [Not Recovered/Not Resolved]
